FAERS Safety Report 4590641-3 (Version None)
Quarter: 2005Q1

REPORT INFORMATION
  Report Type: 
  Country: None (occurrence: None)
  Receive Date: 20050224
  Receipt Date: 20050216
  Transmission Date: 20050727
  Serious: Yes (Hospitalization)
  Sender: FDA-Public Use
  Company Number: US-JNJFOC-20050204851

PATIENT
  Sex: Female

DRUGS (21)
  1. INFLIXIMAB [Suspect]
     Indication: RHEUMATOID ARTHRITIS
     Route: 042
  2. ENBREL [Concomitant]
  3. LORCET-HD [Concomitant]
  4. LORCET-HD [Concomitant]
  5. LODINE [Concomitant]
  6. AMBIEN [Concomitant]
  7. ZYRTEC [Concomitant]
  8. DOXEPIN HCL [Concomitant]
  9. AMARYL [Concomitant]
  10. ATROPINE [Concomitant]
  11. MULTI-VITAMIN [Concomitant]
  12. MULTI-VITAMIN [Concomitant]
  13. MULTI-VITAMIN [Concomitant]
  14. MULTI-VITAMIN [Concomitant]
  15. MULTI-VITAMIN [Concomitant]
  16. MULTI-VITAMIN [Concomitant]
  17. MULTI-VITAMIN [Concomitant]
  18. MULTI-VITAMIN [Concomitant]
  19. IRON [Concomitant]
  20. XALATAN [Concomitant]
  21. PROZAC [Concomitant]

REACTIONS (1)
  - ENDOMETRIAL CANCER [None]
